FAERS Safety Report 8791763 (Version 1)
Quarter: 2012Q4

REPORT INFORMATION
  Report Type: Report from Study
  Country: US (occurrence: US)
  Receive Date: 20120918
  Receipt Date: 20120918
  Transmission Date: 20130627
  Serious: Yes (Other)
  Sender: FDA-Public Use
  Company Number: US-ABBOTT-12P-163-0969969-00

PATIENT
  Age: 59 Year
  Sex: Female

DRUGS (1)
  1. NIASPAN (COATED) 500MG [Suspect]
     Indication: PRODUCT USED FOR UNKNOWN INDICATION
     Dates: start: 20120817

REACTIONS (4)
  - Throat tightness [Unknown]
  - Blister [Not Recovered/Not Resolved]
  - Feeling hot [Not Recovered/Not Resolved]
  - Lip swelling [Not Recovered/Not Resolved]
